FAERS Safety Report 10200701 (Version 1)
Quarter: 2014Q2

REPORT INFORMATION
  Report Type: Spontaneous
  Country: CA (occurrence: CA)
  Receive Date: 20140528
  Receipt Date: 20140528
  Transmission Date: 20141212
  Serious: Yes (Other)
  Sender: FDA-Public Use
  Company Number: 2014SP002869

PATIENT
  Age: 55 Year
  Sex: Female

DRUGS (14)
  1. METHOTREXATE [Suspect]
     Indication: PRODUCT USED FOR UNKNOWN INDICATION
  2. DEXAMETHASONE [Suspect]
     Indication: PAIN
     Route: 042
  3. ENBREL [Suspect]
     Indication: RHEUMATOID ARTHRITIS
     Dates: start: 20110923
  4. ENBREL [Suspect]
     Indication: RHEUMATOID ARTHRITIS
     Dates: end: 20130901
  5. ENBREL [Suspect]
     Indication: RHEUMATOID ARTHRITIS
     Dates: start: 20140314
  6. SULFASALAZINE [Concomitant]
  7. CELEBREX [Concomitant]
  8. DOCUSATE [Concomitant]
  9. PANTOPRAZOLE SODIUM SESQUIHYDRATE [Concomitant]
  10. SYNTHROID [Concomitant]
  11. NITROFURANTOIN [Concomitant]
  12. DOMPERIDONE [Concomitant]
  13. FOLIC ACID [Concomitant]
  14. CLONAZEPAM [Concomitant]

REACTIONS (24)
  - Papillary thyroid cancer [Unknown]
  - Pulmonary mass [Unknown]
  - Inguinal hernia [Unknown]
  - Lung disorder [Not Recovered/Not Resolved]
  - Cough [Not Recovered/Not Resolved]
  - Bronchospasm [Unknown]
  - Oxygen saturation decreased [Not Recovered/Not Resolved]
  - Dyspnoea [Not Recovered/Not Resolved]
  - Injection site mass [Not Recovered/Not Resolved]
  - Injection site bruising [Not Recovered/Not Resolved]
  - Disturbance in social behaviour [Not Recovered/Not Resolved]
  - Malaise [Not Recovered/Not Resolved]
  - Fatigue [Not Recovered/Not Resolved]
  - Headache [Not Recovered/Not Resolved]
  - Hypersomnia [Not Recovered/Not Resolved]
  - Nausea [Not Recovered/Not Resolved]
  - Drug ineffective [Unknown]
  - Pain [Not Recovered/Not Resolved]
  - Pain in extremity [Not Recovered/Not Resolved]
  - Gait disturbance [Unknown]
  - Walking aid user [Not Recovered/Not Resolved]
  - Generalised oedema [Not Recovered/Not Resolved]
  - Weight increased [Not Recovered/Not Resolved]
  - Abdominal pain upper [Not Recovered/Not Resolved]
